FAERS Safety Report 8525252-8 (Version None)
Quarter: 2012Q3

REPORT INFORMATION
  Report Type: 
  Country: None (occurrence: None)
  Receive Date: 20120720
  Receipt Date: 20120717
  Transmission Date: 20120928
  Serious: Yes (Hospitalization)
  Sender: FDA-Public Use
  Company Number: PHHY2012DE047544

PATIENT
  Sex: Female
  Weight: 68 kg

DRUGS (3)
  1. GILENYA [Suspect]
     Indication: MULTIPLE SCLEROSIS
     Dosage: 0.5 MG, QD
     Route: 048
     Dates: start: 20120327, end: 20120625
  2. TOVIAZ [Concomitant]
     Indication: HYPERTONIC BLADDER
     Dosage: 8 MG, QD
     Route: 048
     Dates: start: 20110101
  3. OXYBUTYNIN [Concomitant]
     Indication: BLADDER DYSFUNCTION
     Dosage: 10 MG, QD
     Route: 048
     Dates: start: 20110101

REACTIONS (6)
  - DIZZINESS [None]
  - CONVULSION [None]
  - LOSS OF CONSCIOUSNESS [None]
  - ATONIC SEIZURES [None]
  - MUSCLE RIGIDITY [None]
  - AMNESIA [None]
